FAERS Safety Report 19896215 (Version 10)
Quarter: 2025Q2

REPORT INFORMATION
  Report Type: Report from Study
  Country: US (occurrence: US)
  Receive Date: 20210929
  Receipt Date: 20250617
  Transmission Date: 20250716
  Serious: Yes (Hospitalization, Other)
  Sender: TAKEDA
  Company Number: US-SHIRE-US201944802AA

PATIENT
  Age: 58 Year
  Sex: Female
  Weight: 73 kg

DRUGS (39)
  1. HUMAN C1-ESTERASE INHIBITOR [Suspect]
     Active Substance: HUMAN C1-ESTERASE INHIBITOR
     Indication: Immune system disorder
     Dosage: 1000 INTERNATIONAL UNIT, 2/WEEK
     Dates: start: 20110128
  2. HUMAN C1-ESTERASE INHIBITOR [Suspect]
     Active Substance: HUMAN C1-ESTERASE INHIBITOR
     Dosage: 1000 INTERNATIONAL UNIT, 2/WEEK
     Dates: start: 20150730
  3. HUMAN C1-ESTERASE INHIBITOR [Suspect]
     Active Substance: HUMAN C1-ESTERASE INHIBITOR
  4. FIRAZYR [Suspect]
     Active Substance: ICATIBANT ACETATE
     Indication: Immune system disorder
  5. FIRAZYR [Suspect]
     Active Substance: ICATIBANT ACETATE
  6. CYANOCOBALAMIN [Concomitant]
     Active Substance: CYANOCOBALAMIN
  7. SYMBICORT [Concomitant]
     Active Substance: BUDESONIDE\FORMOTEROL FUMARATE DIHYDRATE
  8. KLONOPIN [Concomitant]
     Active Substance: CLONAZEPAM
  9. SODIUM CHLORIDE [Concomitant]
     Active Substance: SODIUM CHLORIDE
  10. EPINEPHRINE [Concomitant]
     Active Substance: EPINEPHRINE
  11. IMITREX [Concomitant]
     Active Substance: SUMATRIPTAN SUCCINATE
  12. AZITHROMYCIN [Concomitant]
     Active Substance: AZITHROMYCIN
  13. ADVAIR HFA [Concomitant]
     Active Substance: FLUTICASONE PROPIONATE\SALMETEROL XINAFOATE
  14. RANITIDINE [Concomitant]
     Active Substance: RANITIDINE
  15. VITAMIN D3 [Concomitant]
     Active Substance: CHOLECALCIFEROL
  16. MYRBETRIQ [Concomitant]
     Active Substance: MIRABEGRON
  17. FOLIC ACID [Concomitant]
     Active Substance: FOLIC ACID
  18. CELEBREX [Concomitant]
     Active Substance: CELECOXIB
  19. TOPAMAX [Concomitant]
     Active Substance: TOPIRAMATE
  20. METHOTREXATE [Concomitant]
     Active Substance: METHOTREXATE
  21. MACROBID [Concomitant]
     Active Substance: NITROFURANTOIN\NITROFURANTOIN MONOHYDRATE
  22. GUANFACINE HYDROCHLORIDE [Concomitant]
     Active Substance: GUANFACINE HYDROCHLORIDE
  23. TUSSIN [Concomitant]
     Active Substance: GUAIFENESIN
  24. MUCINEX [Concomitant]
     Active Substance: GUAIFENESIN
  25. COMBIVENT RESPIMAT [Concomitant]
     Active Substance: ALBUTEROL SULFATE\IPRATROPIUM BROMIDE
  26. AMLODIPINE BESYLATE [Concomitant]
     Active Substance: AMLODIPINE BESYLATE
  27. OXYBUTYNIN CHLORIDE [Concomitant]
     Active Substance: OXYBUTYNIN CHLORIDE
  28. STERILE WATER [Concomitant]
     Active Substance: WATER
  29. CYMBALTA [Concomitant]
     Active Substance: DULOXETINE HYDROCHLORIDE
  30. ASPIRIN [Concomitant]
     Active Substance: ASPIRIN
  31. CHLOROQUINE PHOSPHATE [Concomitant]
     Active Substance: CHLOROQUINE PHOSPHATE
  32. ALBUTEROL\IPRATROPIUM [Concomitant]
     Active Substance: ALBUTEROL\IPRATROPIUM
  33. FAMOTIDINE [Concomitant]
     Active Substance: FAMOTIDINE
  34. ASPIRIN [Concomitant]
     Active Substance: ASPIRIN
  35. JANSSEN COVID-19 VACCINE [Concomitant]
     Active Substance: AD26.COV2.S
  36. SILDENAFIL CITRATE [Concomitant]
     Active Substance: SILDENAFIL CITRATE
  37. TUDORZA PRESSAIR [Concomitant]
     Active Substance: ACLIDINIUM BROMIDE
  38. BENLYSTA [Concomitant]
     Active Substance: BELIMUMAB
  39. NITROGLYCERIN [Concomitant]
     Active Substance: NITROGLYCERIN

REACTIONS (12)
  - Eye disorder [Unknown]
  - Systemic lupus erythematosus [Unknown]
  - Pain in extremity [Unknown]
  - Pericardial effusion [Unknown]
  - Chest pain [Unknown]
  - Arthropathy [Unknown]
  - Neuralgia [Unknown]
  - Muscle spasms [Unknown]
  - Product dose omission issue [Unknown]
  - Raynaud^s phenomenon [Unknown]
  - Bronchitis [Unknown]
  - Arthralgia [Unknown]

NARRATIVE: CASE EVENT DATE: 20210819
